FAERS Safety Report 6417311-0 (Version None)
Quarter: 2009Q4

REPORT INFORMATION
  Report Type: 
  Country: None (occurrence: None)
  Receive Date: 20091028
  Receipt Date: 20091020
  Transmission Date: 20100525
  Serious: Yes (Other)
  Sender: FDA-Public Use
  Company Number: PHHY2009JP45591

PATIENT
  Age: 65 Year
  Sex: Female

DRUGS (5)
  1. TEGRETOL [Suspect]
     Dosage: UNK
     Route: 048
  2. ALEVIATIN [Concomitant]
     Route: 048
  3. DEPAKENE [Concomitant]
     Route: 048
  4. UFT [Concomitant]
  5. LEUCOVORIN [Concomitant]
     Dosage: UNK

REACTIONS (1)
  - EPILEPSY [None]
